FAERS Safety Report 14211276 (Version 1)
Quarter: 2017Q4

REPORT INFORMATION
  Report Type: Spontaneous
  Country: US (occurrence: US)
  Receive Date: 20171121
  Receipt Date: 20171121
  Transmission Date: 20180321
  Serious: No
  Sender: FDA-Public Use
  Company Number: US-TAKEDA-2017US008677

PATIENT
  Sex: Female

DRUGS (2)
  1. BRIGATINIB [Suspect]
     Active Substance: BRIGATINIB
     Indication: NON-SMALL CELL LUNG CANCER
     Dosage: 180 MG, QD
     Route: 048
  2. BRIGATINIB [Suspect]
     Active Substance: BRIGATINIB
     Dosage: 120 MG, QD
     Route: 048

REACTIONS (1)
  - Vomiting [Recovered/Resolved]
